FAERS Safety Report 10779033 (Version 1)
Quarter: 2015Q1

REPORT INFORMATION
  Report Type: Spontaneous
  Country: US (occurrence: None)
  Receive Date: 20150206
  Receipt Date: 20150206
  Transmission Date: 20150721
  Serious: Yes (Other)
  Sender: FDA-Public Use
  Company Number: US2015GSK014453

PATIENT
  Age: 25 Year
  Sex: Female

DRUGS (3)
  1. VIRACEPT [Suspect]
     Active Substance: NELFINAVIR MESYLATE
     Indication: HIV INFECTION
     Route: 048
     Dates: start: 20141201, end: 20141209
  2. LAMIVUDINE AND ZIDOVUDINE [Suspect]
     Active Substance: LAMIVUDINE\ZIDOVUDINE
     Indication: HIV INFECTION
     Route: 048
     Dates: start: 20141201, end: 20141209
  3. COMPLERA [Suspect]
     Active Substance: EMTRICITABINE\RILPIVIRINE HYDROCHLORIDE\TENOFOVIR DISOPROXIL FUMARATE
     Indication: HIV INFECTION
     Route: 048
     Dates: start: 20141021, end: 20141023

REACTIONS (3)
  - Abortion spontaneous [None]
  - Exposure during pregnancy [None]
  - Premature rupture of membranes [None]

NARRATIVE: CASE EVENT DATE: 20141209
